FAERS Safety Report 7315584-3 (Version None)
Quarter: 2011Q1

REPORT INFORMATION
  Report Type: 
  Country: None (occurrence: None)
  Receive Date: 20110215
  Receipt Date: 20110204
  Transmission Date: 20110831
  Serious: Yes (Hospitalization)
  Sender: FDA-Public Use
  Company Number: GER/UKI/10/0013629

PATIENT
  Age: 76 Year
  Sex: Female

DRUGS (3)
  1. OMEPRAZOLE [Suspect]
     Indication: PRODUCT USED FOR UNKNOWN INDICATION
  2. FUROSEMIDE (FUROSEMIDE) [Suspect]
     Indication: GRAVITATIONAL OEDEMA
  3. NSAID NOS (NSAID'S) [Concomitant]

REACTIONS (8)
  - DIZZINESS [None]
  - FALL [None]
  - HYPOMAGNESAEMIA [None]
  - NAUSEA [None]
  - HYPOCALCAEMIA [None]
  - DIARRHOEA [None]
  - DECREASED APPETITE [None]
  - MOBILITY DECREASED [None]
